FAERS Safety Report 13606492 (Version 2)
Quarter: 2017Q2

REPORT INFORMATION
  Report Type: Report from Study
  Country: CO (occurrence: CO)
  Receive Date: 20170602
  Receipt Date: 20170619
  Transmission Date: 20170830
  Serious: Yes (Hospitalization, Other)
  Sender: FDA-Public Use
  Company Number: PHHY2017CO078627

PATIENT
  Sex: Male
  Weight: 53 kg

DRUGS (3)
  1. TASIGNA [Suspect]
     Active Substance: NILOTINIB
     Indication: CHRONIC MYELOID LEUKAEMIA
     Dosage: 200 MG, BID (2 CAPSULES OF  200 MG EVERY 12 HOURS)
     Route: 048
     Dates: start: 20140710, end: 20170505
  2. TASIGNA [Suspect]
     Active Substance: NILOTINIB
     Dosage: 200 MG, UNK
     Route: 048
     Dates: start: 2015, end: 20170530
  3. DECITABINE. [Concomitant]
     Active Substance: DECITABINE
     Indication: LEUKAEMIA
     Dosage: 100 MG, UNK
     Route: 065

REACTIONS (4)
  - Neoplasm [Unknown]
  - Pain [Recovering/Resolving]
  - Neck mass [Unknown]
  - Subcutaneous abscess [Unknown]
